FAERS Safety Report 22902977 (Version 2)
Quarter: 2023Q4

REPORT INFORMATION
  Report Type: Spontaneous
  Country: UY (occurrence: UY)
  Receive Date: 20230904
  Receipt Date: 20231004
  Transmission Date: 20240110
  Serious: Yes (Other)
  Sender: FDA-Public Use
  Company Number: UY-PFIZER INC-PV202300148257

PATIENT
  Age: 74 Year
  Sex: Female

DRUGS (1)
  1. ENBREL [Suspect]
     Active Substance: ETANERCEPT
     Indication: Rheumatoid arthritis
     Dosage: 50 MG, WEEKLY
     Route: 065
     Dates: start: 20210513

REACTIONS (5)
  - Hip surgery [Not Recovered/Not Resolved]
  - Hip arthroplasty [Unknown]
  - Red blood cell count decreased [Not Recovered/Not Resolved]
  - Bronchitis [Unknown]
  - Anaemia [Unknown]

NARRATIVE: CASE EVENT DATE: 20230501
